FAERS Safety Report 7180131-6 (Version None)
Quarter: 2010Q4

REPORT INFORMATION
  Report Type: 
  Country: None (occurrence: None)
  Receive Date: 20101221
  Receipt Date: 20101209
  Transmission Date: 20110411
  Serious: Yes (Other)
  Sender: FDA-Public Use
  Company Number: BR-AMGEN-BRASP2010008389

PATIENT

DRUGS (5)
  1. ENBREL [Suspect]
     Indication: RHEUMATOID ARTHRITIS
     Dosage: 50 MG, WEEKLY
     Route: 058
     Dates: start: 20101111
  2. METHOTREXATE [Concomitant]
     Indication: RHEUMATOID ARTHRITIS
     Dosage: 20 MG, ONCE WEEKLY
     Dates: start: 20000101
  3. CHLOROQUINE PHOSPHATE [Concomitant]
     Indication: RHEUMATOID ARTHRITIS
     Dosage: 200 MG, 1X/DAY
     Dates: start: 19950101
  4. FLUOXETINE [Concomitant]
     Indication: ANXIETY
     Dosage: 15 MG, 1X/DAY
     Dates: start: 20101109
  5. FOLIC ACID [Concomitant]
     Indication: IMMUNODEFICIENCY
     Dosage: 5 MG, WEEKLY

REACTIONS (8)
  - CONDITION AGGRAVATED [None]
  - DECREASED ACTIVITY [None]
  - DEPRESSED MOOD [None]
  - FLUID RETENTION [None]
  - HEADACHE [None]
  - HYPOTONIA [None]
  - URINARY RETENTION [None]
  - VARICOSE VEIN [None]
